FAERS Safety Report 4584819-2 (Version None)
Quarter: 2005Q1

REPORT INFORMATION
  Report Type: 
  Country: None (occurrence: None)
  Receive Date: 20050214
  Receipt Date: 20050131
  Transmission Date: 20050727
  Serious: Yes (Hospitalization, Other)
  Sender: FDA-Public Use
  Company Number: 2005023183

PATIENT
  Sex: Female
  Weight: 86.1834 kg

DRUGS (11)
  1. ZOLOFT [Suspect]
     Indication: DEPRESSION
     Dosage: 100 MG (100 MG, 1 IN 1 D), ORAL
     Route: 048
  2. ZOLOFT [Suspect]
     Indication: PANIC ATTACK
     Dosage: 100 MG (100 MG, 1 IN 1 D), ORAL
     Route: 048
  3. ALL OTHER NON-THERAPEUTIC PRODUCTS (ALL OTHER NON-THERAPEUTIC PRODUCTS [Concomitant]
  4. ALPRAZOLAM [Concomitant]
  5. FUROSEMIDE [Concomitant]
  6. AMLODIPINE BESYLATE [Concomitant]
  7. ENALAPRIL MALEATE [Concomitant]
  8. DIGOXIN [Concomitant]
  9. EZETIMIBE (EZETIMIBE) [Concomitant]
  10. COLESEVELAM HYDROCHLORIDE (COLESVELAM HYDROCHLORIDE) [Concomitant]
  11. HYDROCODONE (HYDROCODONE) [Concomitant]

REACTIONS (18)
  - ABASIA [None]
  - CARDIOVASCULAR DISORDER [None]
  - CEREBRAL DISORDER [None]
  - DERMATITIS CONTACT [None]
  - DIABETES MELLITUS [None]
  - DIFFICULTY IN WALKING [None]
  - DIZZINESS [None]
  - FALL [None]
  - FEELING ABNORMAL [None]
  - FIBROMYALGIA [None]
  - FOOT FRACTURE [None]
  - FRACTURED COCCYX [None]
  - HALLUCINATION, AUDITORY [None]
  - HALLUCINATION, VISUAL [None]
  - PANIC ATTACK [None]
  - PYREXIA [None]
  - SCIATICA [None]
  - SUICIDAL IDEATION [None]
